FAERS Safety Report 7984367-3 (Version None)
Quarter: 2011Q4

REPORT INFORMATION
  Report Type: 
  Country: None (occurrence: None)
  Receive Date: 20111216
  Receipt Date: 20111206
  Transmission Date: 20120403
  Serious: Yes (Death)
  Sender: FDA-Public Use
  Company Number: FR-JNJFOC-20111206042

PATIENT

DRUGS (43)
  1. DOXORUBICIN HCL [Suspect]
     Route: 042
  2. DOXORUBICIN HCL [Suspect]
     Route: 042
  3. BLEOMYCIN SULFATE [Suspect]
     Route: 065
  4. PREDNISONE TAB [Suspect]
     Indication: DIFFUSE LARGE B-CELL LYMPHOMA
     Route: 065
  5. PREDNISONE TAB [Suspect]
     Route: 065
  6. ETOPOSIDE [Suspect]
     Route: 065
  7. RITUXIMAB [Suspect]
     Route: 065
  8. RITUXIMAB [Suspect]
     Route: 065
  9. PREDNISONE TAB [Suspect]
     Route: 065
  10. METHOTREXATE [Suspect]
     Route: 042
  11. ETOPOSIDE [Suspect]
     Indication: DIFFUSE LARGE B-CELL LYMPHOMA
     Route: 065
  12. IFOSFAMIDE [Suspect]
     Route: 065
  13. CYCLOPHOSPHAMIDE [Suspect]
     Route: 065
  14. PREDNISONE TAB [Suspect]
     Route: 065
  15. IFOSFAMIDE [Suspect]
     Route: 065
  16. CYTARABINE [Suspect]
     Indication: DIFFUSE LARGE B-CELL LYMPHOMA
     Route: 058
  17. RITUXIMAB [Suspect]
     Indication: DIFFUSE LARGE B-CELL LYMPHOMA
     Route: 065
  18. RITUXIMAB [Suspect]
     Route: 065
  19. CYCLOPHOSPHAMIDE [Suspect]
     Route: 065
  20. ELDISINE [Suspect]
     Route: 065
  21. METHOTREXATE [Suspect]
     Route: 042
  22. IFOSFAMIDE [Suspect]
     Indication: DIFFUSE LARGE B-CELL LYMPHOMA
     Route: 065
  23. DOXORUBICIN HCL [Suspect]
     Indication: DIFFUSE LARGE B-CELL LYMPHOMA
     Route: 042
  24. RITUXIMAB [Suspect]
     Route: 065
  25. CYCLOPHOSPHAMIDE [Suspect]
     Indication: DIFFUSE LARGE B-CELL LYMPHOMA
     Route: 065
  26. ELDISINE [Suspect]
     Indication: DIFFUSE LARGE B-CELL LYMPHOMA
     Route: 065
  27. BLEOMYCIN SULFATE [Suspect]
     Route: 065
  28. BLEOMYCIN SULFATE [Suspect]
     Route: 065
  29. CYTARABINE [Suspect]
     Route: 058
  30. RITUXIMAB [Suspect]
     Route: 065
  31. RITUXIMAB [Suspect]
     Route: 065
  32. ELDISINE [Suspect]
     Route: 065
  33. ELDISINE [Suspect]
     Route: 065
  34. FILGRASTIM [Suspect]
     Indication: DIFFUSE LARGE B-CELL LYMPHOMA
     Route: 058
  35. METHOTREXATE [Suspect]
     Indication: DIFFUSE LARGE B-CELL LYMPHOMA
     Route: 037
  36. DOXORUBICIN HCL [Suspect]
     Route: 042
  37. RITUXIMAB [Suspect]
     Route: 065
  38. CYCLOPHOSPHAMIDE [Suspect]
     Route: 065
  39. IFOSFAMIDE [Suspect]
     Route: 065
  40. BLEOMYCIN SULFATE [Suspect]
     Indication: DIFFUSE LARGE B-CELL LYMPHOMA
     Route: 065
  41. LEUCOVORIN CALCIUM [Suspect]
     Indication: DIFFUSE LARGE B-CELL LYMPHOMA
     Route: 065
  42. ETOPOSIDE [Suspect]
     Route: 065
  43. ETOPOSIDE [Suspect]
     Route: 065

REACTIONS (1)
  - DEATH [None]
